FAERS Safety Report 10922716 (Version 1)
Quarter: 2015Q1

REPORT INFORMATION
  Report Type: Report from Study
  Country: JP (occurrence: JP)
  Receive Date: 20150317
  Receipt Date: 20150317
  Transmission Date: 20150721
  Serious: Yes (Other)
  Sender: FDA-Public Use
  Company Number: JP-GSKJP-JP2015JPN032459AA

PATIENT
  Age: 50 Year
  Sex: Female

DRUGS (1)
  1. EPOPROSTENOL SODIUM. [Suspect]
     Active Substance: EPOPROSTENOL SODIUM
     Dosage: UNK
     Route: 042

REACTIONS (2)
  - Headache [Unknown]
  - Immunoglobulin G4 related sclerosing disease [Unknown]
